FAERS Safety Report 7398326-5 (Version None)
Quarter: 2011Q2

REPORT INFORMATION
  Report Type: 
  Country: None (occurrence: None)
  Receive Date: 20110406
  Receipt Date: 20110325
  Transmission Date: 20111010
  Serious: Yes (Hospitalization, Other)
  Sender: FDA-Public Use
  Company Number: US-ELI_LILLY_AND_COMPANY-US201101000417

PATIENT
  Sex: Female
  Weight: 61.68 kg

DRUGS (8)
  1. FORTEO [Suspect]
     Dosage: 20 UG, QOD
  2. FORTEO [Suspect]
     Indication: OSTEOPOROSIS
     Dosage: 20 UG, DAILY (1/D)
     Route: 065
     Dates: start: 20100301
  3. VITAMIN D [Concomitant]
     Dosage: UNK, UNKNOWN
     Route: 065
     Dates: start: 20100301
  4. TRIAMTERENE [Concomitant]
     Route: 065
  5. CALCIUM [Concomitant]
     Route: 065
  6. GLUCOSAMINE [Concomitant]
  7. ARIMIDEX [Concomitant]
     Dosage: UNK, UNKNOWN
     Route: 065
  8. LISINOPRIL [Concomitant]
     Dosage: 10 MG, DAILY (1/D)
     Route: 065

REACTIONS (16)
  - GASTRITIS [None]
  - BLOOD POTASSIUM DECREASED [None]
  - OEDEMA PERIPHERAL [None]
  - DRUG DOSE OMISSION [None]
  - APHAGIA [None]
  - GAIT DISTURBANCE [None]
  - ARTHRALGIA [None]
  - HYPERCALCAEMIA [None]
  - HYPERVITAMINOSIS [None]
  - VITAMIN D ABNORMAL [None]
  - ERUCTATION [None]
  - HYPERTENSION [None]
  - FEELING ABNORMAL [None]
  - OSTEOARTHRITIS [None]
  - DIARRHOEA [None]
  - ASTHENIA [None]
